FAERS Safety Report 9565017 (Version 2)
Quarter: 2013Q3

REPORT INFORMATION
  Report Type: Spontaneous
  Country: US (occurrence: US)
  Receive Date: 20130930
  Receipt Date: 20130930
  Transmission Date: 20140515
  Serious: Yes (Other)
  Sender: FDA-Public Use
  Company Number: US-UCBSA-095000

PATIENT
  Age: 65 Year
  Sex: Female

DRUGS (18)
  1. KEPPRA XR [Suspect]
     Indication: CONVULSION
     Dosage: STRENGTH: 750 MG, SEVERAL YEARS
     Route: 048
     Dates: end: 201212
  2. KEPPRA XR [Suspect]
     Indication: CONVULSION
     Dosage: DECREASED DOSE
     Route: 048
     Dates: start: 201212
  3. KEPPRA [Suspect]
     Indication: CONVULSION
     Dosage: MANY YEARS AGO
  4. KEPPRA [Suspect]
     Indication: CONVULSION
     Dosage: DAILY DOSE: 750 MG
  5. ALPRAZOLAM [Concomitant]
     Indication: STRESS
     Route: 048
  6. ALPRAZOLAM [Concomitant]
     Indication: STRESS
     Route: 048
  7. NORVASC [Concomitant]
     Indication: HYPERTENSION
     Dosage: MANY YEARS
     Route: 048
  8. MIRALAX [Concomitant]
     Indication: CONSTIPATION
     Route: 048
  9. MVI [Concomitant]
     Indication: VITAMIN SUPPLEMENTATION
     Dosage: 1 TABLET, FROM MANY YEARS
     Route: 048
  10. FISH OIL [Concomitant]
     Indication: NUTRITIONAL SUPPLEMENTATION
     Dosage: 1 TABLET, FROM MANY YEARS
     Route: 048
  11. PLAVIX [Concomitant]
     Dosage: SINCE STENT REPLACEMENT
     Route: 048
     Dates: start: 201210
  12. ASPIRIN [Concomitant]
     Indication: CORONARY ARTERY DISEASE
     Dosage: MANY YEARS
     Route: 048
  13. LISINOPRIL [Concomitant]
     Indication: HYPERTENSION
     Dosage: ONE YEAR
     Route: 048
  14. METOPROLOL [Concomitant]
     Indication: CORONARY ARTERY DISEASE
     Dosage: MANY YEARS
     Route: 048
  15. SIMVASTATIN [Concomitant]
     Indication: BLOOD CHOLESTEROL INCREASED
     Dosage: AT BED TIME
     Route: 048
  16. SYNTHROID [Concomitant]
     Indication: HYPOTHYROIDISM
     Dosage: MANY YEARS
     Route: 048
  17. FOSAMAX [Concomitant]
     Indication: BONE LOSS
     Dosage: MANY YEARS, 1 TABLET
     Route: 048
  18. ZOLPIDEM [Concomitant]
     Indication: ANXIETY
     Dosage: AT BED TIME
     Route: 048

REACTIONS (13)
  - Coronary artery disease [Unknown]
  - Carotid artery stenosis [Unknown]
  - Hypertension [Unknown]
  - Bone loss [Unknown]
  - Chest pain [Recovered/Resolved]
  - Injury [Unknown]
  - Contusion [Unknown]
  - Swelling [Unknown]
  - Headache [Unknown]
  - Malaise [Unknown]
  - Vitreous floaters [Unknown]
  - Concussion [Unknown]
  - Inappropriate schedule of drug administration [Unknown]
